FAERS Safety Report 8989800 (Version 2)
Quarter: 2013Q1

REPORT INFORMATION
  Report Type: Spontaneous
  Country: US (occurrence: US)
  Receive Date: 20121228
  Receipt Date: 20130114
  Transmission Date: 20140127
  Serious: Yes (Hospitalization, Other)
  Sender: FDA-Public Use
  Company Number: US-ELI_LILLY_AND_COMPANY-US201212005409

PATIENT
  Age: 54 None
  Sex: Female

DRUGS (2)
  1. BYDUREON [Suspect]
     Indication: TYPE 2 DIABETES MELLITUS
     Dosage: 2 MG, WEEKLY (1/W)
     Route: 058
     Dates: start: 20121004
  2. GLUCOPHAGE                              /USA/ [Concomitant]
     Indication: TYPE 2 DIABETES MELLITUS
     Dosage: 1000 MG, BID
     Route: 048

REACTIONS (13)
  - Myocardial infarction [Unknown]
  - Limb discomfort [Recovering/Resolving]
  - Chest discomfort [Recovering/Resolving]
  - Dysstasia [Recovering/Resolving]
  - Influenza like illness [Recovering/Resolving]
  - Palpitations [Unknown]
  - Somnolence [Recovering/Resolving]
  - Fatigue [Recovering/Resolving]
  - Dyspepsia [Recovering/Resolving]
  - Asthenia [Recovering/Resolving]
  - Nausea [Recovering/Resolving]
  - Injection site nodule [Not Recovered/Not Resolved]
  - Dizziness [Unknown]
